FAERS Safety Report 10243852 (Version 1)
Quarter: 2014Q2

REPORT INFORMATION
  Report Type: Spontaneous
  Country: JP (occurrence: JP)
  Receive Date: 20140618
  Receipt Date: 20140618
  Transmission Date: 20141212
  Serious: Yes (Other)
  Sender: FDA-Public Use
  Company Number: JP-009507513-1406JPN007616

PATIENT
  Age: 56 Year
  Sex: Male

DRUGS (2)
  1. REMERON [Suspect]
     Dosage: DAILY DOSE UNKNOWN
     Route: 048
  2. DORAL [Concomitant]
     Dosage: POR, DAILY DOSAGE UNKNOWN
     Route: 048

REACTIONS (2)
  - Loss of consciousness [Unknown]
  - Convulsion [Unknown]
